FAERS Safety Report 22291333 (Version 2)
Quarter: 2023Q2

REPORT INFORMATION
  Report Type: Spontaneous
  Country: CN (occurrence: CN)
  Receive Date: 20230506
  Receipt Date: 20230512
  Transmission Date: 20230721
  Serious: Yes (Hospitalization, Other)
  Sender: FDA-Public Use
  Company Number: CN-002147023-NVSC2023CN101682

PATIENT
  Age: 82 Year
  Sex: Female
  Weight: 53 kg

DRUGS (2)
  1. SACUBITRIL\VALSARTAN [Suspect]
     Active Substance: SACUBITRIL\VALSARTAN
     Indication: Hypertension
     Dosage: 50 MG, BID
     Route: 048
     Dates: start: 20230401, end: 20230410
  2. SACUBITRIL\VALSARTAN [Suspect]
     Active Substance: SACUBITRIL\VALSARTAN
     Dosage: 25 MG, BID
     Route: 048
     Dates: start: 20230417

REACTIONS (4)
  - Renal impairment [Not Recovered/Not Resolved]
  - Peripheral swelling [Unknown]
  - Prescribed underdose [Unknown]
  - Inappropriate schedule of product administration [Unknown]

NARRATIVE: CASE EVENT DATE: 20230401
